FAERS Safety Report 25277860 (Version 1)
Quarter: 2025Q2

REPORT INFORMATION
  Report Type: Spontaneous
  Country: US (occurrence: US)
  Receive Date: 20250507
  Receipt Date: 20250507
  Transmission Date: 20250716
  Serious: No
  Sender: BAUSCH AND LOMB
  Company Number: US-BAUSCH-BL-2025-005789

PATIENT
  Age: 76 Year
  Sex: Female

DRUGS (2)
  1. ARESTIN [Suspect]
     Active Substance: MINOCYCLINE HYDROCHLORIDE
     Indication: Tooth abscess
     Route: 065
     Dates: start: 20250501
  2. ARESTIN [Suspect]
     Active Substance: MINOCYCLINE HYDROCHLORIDE

REACTIONS (2)
  - Ocular hyperaemia [Not Recovered/Not Resolved]
  - Crying [Not Recovered/Not Resolved]

NARRATIVE: CASE EVENT DATE: 20250501
